FAERS Safety Report 11673001 (Version 1)
Quarter: 2015Q4

REPORT INFORMATION
  Report Type: Spontaneous
  Country: US (occurrence: US)
  Receive Date: 20151027
  Receipt Date: 20151027
  Transmission Date: 20160304
  Serious: No
  Sender: FDA-Public Use
  Company Number: US-ELI_LILLY_AND_COMPANY-US201006003937

PATIENT
  Age: 61 Year
  Sex: Female

DRUGS (1)
  1. FORTEO [Suspect]
     Active Substance: TERIPARATIDE
     Indication: OSTEOPOROSIS
     Dosage: 20 UG, DAILY (1/D)
     Dates: start: 20100505, end: 20100611

REACTIONS (13)
  - Nausea [Not Recovered/Not Resolved]
  - Splinter [Unknown]
  - Incorrect route of drug administration [Unknown]
  - Bone pain [Not Recovered/Not Resolved]
  - Injection site pain [Unknown]
  - Injection site erythema [Unknown]
  - Pain in extremity [Not Recovered/Not Resolved]
  - Injection site haemorrhage [Recovered/Resolved]
  - Injection site bruising [Recovered/Resolved]
  - Abdominal discomfort [Unknown]
  - Muscle spasms [Not Recovered/Not Resolved]
  - Rash [Recovered/Resolved]
  - Arthralgia [Not Recovered/Not Resolved]

NARRATIVE: CASE EVENT DATE: 20100610
